FAERS Safety Report 5237845-4 (Version None)
Quarter: 2007Q1

REPORT INFORMATION
  Report Type: 
  Country: None (occurrence: None)
  Receive Date: 20070214
  Receipt Date: 20070208
  Transmission Date: 20070707
  Serious: Yes (Death)
  Sender: FDA-Public Use
  Company Number: PHEH2007US01530

PATIENT
  Age: 63 Year
  Sex: Male

DRUGS (4)
  1. HYDROCHLOROTHIAZIDE [Concomitant]
     Dosage: 25 MG, QD
     Route: 048
     Dates: end: 20070121
  2. NEXIUM [Concomitant]
     Indication: GASTROOESOPHAGEAL REFLUX DISEASE
     Dosage: 40 MG, QD
     Route: 048
     Dates: start: 20040308, end: 20070121
  3. VICODIN [Concomitant]
     Indication: BACK PAIN
     Dosage: 1-2 DF, Q4-6H,PRN
     Route: 048
     Dates: start: 20030604, end: 20070121
  4. GLEEVEC [Suspect]
     Indication: CHRONIC MYELOID LEUKAEMIA
     Dosage: 400 MG, QD
     Route: 048
     Dates: start: 20010701, end: 20070121

REACTIONS (2)
  - MYOCARDIAL INFARCTION [None]
  - PROSTATIC SPECIFIC ANTIGEN INCREASED [None]
